FAERS Safety Report 5339957-3 (Version None)
Quarter: 2007Q2

REPORT INFORMATION
  Report Type: 
  Country: None (occurrence: None)
  Receive Date: 20070529
  Receipt Date: 20070516
  Transmission Date: 20071010
  Serious: Yes (Hospitalization, Other)
  Sender: FDA-Public Use
  Company Number: T200700532

PATIENT
  Age: 35 Year
  Sex: Female

DRUGS (1)
  1. OPTIRAY 350 [Suspect]
     Indication: COMPUTERISED TOMOGRAM THORAX
     Dosage: UNK, SINGLE, INTRAVENOUS
     Route: 042
     Dates: start: 20070511, end: 20070511

REACTIONS (2)
  - ANAPHYLACTIC REACTION [None]
  - CHEST PAIN [None]
